FAERS Safety Report 25681309 (Version 1)
Quarter: 2025Q3

REPORT INFORMATION
  Report Type: Report from Study
  Country: US (occurrence: US)
  Receive Date: 20250814
  Receipt Date: 20250814
  Transmission Date: 20251020
  Serious: Yes (Other)
  Sender: MALLINCKRODT
  Company Number: US-MALLINCKRODT-MNK202504782

PATIENT
  Sex: Female

DRUGS (6)
  1. CORTICOTROPIN [Suspect]
     Active Substance: CORTICOTROPIN
     Indication: Sarcoidosis
  2. PREDNISONE [Concomitant]
     Active Substance: PREDNISONE
  3. SIROLIMUS [Concomitant]
     Active Substance: SIROLIMUS
  4. DANAZOL [Concomitant]
     Active Substance: DANAZOL
  5. PROMACTA [Concomitant]
     Active Substance: ELTROMBOPAG OLAMINE
  6. NORVASC [Concomitant]
     Active Substance: AMLODIPINE BESYLATE

REACTIONS (3)
  - Urinary tract infection [Unknown]
  - Dyspnoea [Unknown]
  - Blood pressure abnormal [Unknown]
